FAERS Safety Report 9773660 (Version 2)
Quarter: 2014Q1

REPORT INFORMATION
  Report Type: Spontaneous
  Country: US (occurrence: US)
  Receive Date: 20131219
  Receipt Date: 20140122
  Transmission Date: 20141002
  Serious: Yes (Other)
  Sender: FDA-Public Use
  Company Number: US-ACORDA-ACO_100770_2013

PATIENT
  Sex: Female

DRUGS (1)
  1. AMPYRA [Suspect]
     Indication: PRODUCT USED FOR UNKNOWN INDICATION
     Dosage: UNK,UNK
     Route: 065
     Dates: start: 20120724

REACTIONS (4)
  - Suicidal ideation [Recovered/Resolved]
  - Depression [Recovered/Resolved]
  - Mood altered [Recovered/Resolved]
  - Thinking abnormal [Recovered/Resolved]
